FAERS Safety Report 15665414 (Version 18)
Quarter: 2021Q4

REPORT INFORMATION
  Report Type: Spontaneous
  Country: CA (occurrence: CA)
  Receive Date: 20181128
  Receipt Date: 20211210
  Transmission Date: 20220304
  Serious: Yes (Hospitalization, Other)
  Sender: FDA-Public Use
  Company Number: CA-ABBVIE-18K-028-2570644-00

PATIENT
  Age: 78 Year
  Sex: Female

DRUGS (69)
  1. HUMIRA [Suspect]
     Active Substance: ADALIMUMAB
     Indication: Rheumatoid arthritis
     Route: 058
  2. HUMIRA [Suspect]
     Active Substance: ADALIMUMAB
     Indication: Pain
  3. HUMIRA [Suspect]
     Active Substance: ADALIMUMAB
     Indication: Mobility decreased
  4. HUMIRA [Suspect]
     Active Substance: ADALIMUMAB
     Indication: Joint stiffness
  5. ARAVA [Suspect]
     Active Substance: LEFLUNOMIDE
     Indication: Rheumatoid arthritis
     Route: 048
  6. ARAVA [Suspect]
     Active Substance: LEFLUNOMIDE
     Indication: Pain
  7. ARAVA [Suspect]
     Active Substance: LEFLUNOMIDE
     Indication: Mobility decreased
  8. ARAVA [Suspect]
     Active Substance: LEFLUNOMIDE
     Indication: Joint stiffness
  9. DICLOFENAC POTASSIUM [Suspect]
     Active Substance: DICLOFENAC POTASSIUM
     Indication: Rheumatoid arthritis
     Route: 065
  10. ENBREL [Suspect]
     Active Substance: ETANERCEPT
     Indication: Rheumatoid arthritis
     Route: 058
  11. ENBREL [Suspect]
     Active Substance: ETANERCEPT
     Indication: Pain
  12. ENBREL [Suspect]
     Active Substance: ETANERCEPT
     Indication: Mobility decreased
  13. ENBREL [Suspect]
     Active Substance: ETANERCEPT
     Indication: Joint stiffness
  14. METHOTREXATE [Suspect]
     Active Substance: METHOTREXATE
     Indication: Rheumatoid arthritis
     Route: 065
  15. METHOTREXATE [Suspect]
     Active Substance: METHOTREXATE
     Indication: Pain
  16. METHOTREXATE [Suspect]
     Active Substance: METHOTREXATE
     Indication: Mobility decreased
  17. METHOTREXATE [Suspect]
     Active Substance: METHOTREXATE
     Indication: Joint stiffness
  18. MOTRIN [Suspect]
     Active Substance: IBUPROFEN
     Indication: Rheumatoid arthritis
     Route: 065
  19. MOTRIN [Suspect]
     Active Substance: IBUPROFEN
     Indication: Pain
  20. MOTRIN [Suspect]
     Active Substance: IBUPROFEN
     Indication: Mobility decreased
  21. MOTRIN [Suspect]
     Active Substance: IBUPROFEN
     Indication: Joint stiffness
  22. NAPROSYN [Suspect]
     Active Substance: NAPROXEN
     Indication: Rheumatoid arthritis
     Route: 065
  23. NAPROSYN [Suspect]
     Active Substance: NAPROXEN
     Indication: Pain
  24. NAPROSYN [Suspect]
     Active Substance: NAPROXEN
     Indication: Mobility decreased
  25. NAPROSYN [Suspect]
     Active Substance: NAPROXEN
     Indication: Joint stiffness
  26. PLAQUENIL [Suspect]
     Active Substance: HYDROXYCHLOROQUINE SULFATE
     Indication: Rheumatoid arthritis
     Route: 048
  27. GOLD SODIUM THIOMALATE [Suspect]
     Active Substance: GOLD SODIUM THIOMALATE
     Indication: Rheumatoid arthritis
     Route: 051
  28. GOLD SODIUM THIOMALATE [Suspect]
     Active Substance: GOLD SODIUM THIOMALATE
     Route: 051
  29. VOLTAREN [Suspect]
     Active Substance: DICLOFENAC SODIUM
     Indication: Rheumatoid arthritis
     Route: 065
  30. GOLD SODIUM THIOMALATE [Suspect]
     Active Substance: GOLD SODIUM THIOMALATE
     Indication: Rheumatoid arthritis
     Route: 065
  31. GOLD SODIUM THIOMALATE [Suspect]
     Active Substance: GOLD SODIUM THIOMALATE
     Indication: Pain
  32. GOLD SODIUM THIOMALATE [Suspect]
     Active Substance: GOLD SODIUM THIOMALATE
     Indication: Joint stiffness
  33. GOLD SODIUM THIOMALATE [Suspect]
     Active Substance: GOLD SODIUM THIOMALATE
     Indication: Mobility decreased
  34. ASPIRIN [Suspect]
     Active Substance: ASPIRIN
     Indication: Rheumatoid arthritis
     Route: 048
  35. ASPIRIN [Suspect]
     Active Substance: ASPIRIN
     Indication: Pain
  36. ASPIRIN [Suspect]
     Active Substance: ASPIRIN
     Indication: Mobility decreased
  37. ASPIRIN [Suspect]
     Active Substance: ASPIRIN
     Indication: Joint stiffness
  38. NAPROXEN [Suspect]
     Active Substance: NAPROXEN
     Indication: Rheumatoid arthritis
     Route: 065
  39. HYDROXYCHLOROQUINE SULFATE [Suspect]
     Active Substance: HYDROXYCHLOROQUINE SULFATE
     Indication: Rheumatoid arthritis
     Route: 065
  40. DICLOFENAC [Suspect]
     Active Substance: DICLOFENAC
     Indication: Rheumatoid arthritis
     Route: 065
  41. DICLOFENAC [Suspect]
     Active Substance: DICLOFENAC
     Indication: Pain
  42. DICLOFENAC [Suspect]
     Active Substance: DICLOFENAC
     Indication: Mobility decreased
  43. DICLOFENAC [Suspect]
     Active Substance: DICLOFENAC
     Indication: Joint stiffness
  44. HYDROXYCHLOROQUINE [Suspect]
     Active Substance: HYDROXYCHLOROQUINE
     Indication: Rheumatoid arthritis
     Route: 048
  45. HYDROXYCHLOROQUINE [Suspect]
     Active Substance: HYDROXYCHLOROQUINE
     Indication: Pain
  46. HYDROXYCHLOROQUINE [Suspect]
     Active Substance: HYDROXYCHLOROQUINE
     Indication: Mobility decreased
  47. HYDROXYCHLOROQUINE [Suspect]
     Active Substance: HYDROXYCHLOROQUINE
     Indication: Joint stiffness
  48. ASCORBIC ACID [Suspect]
     Active Substance: ASCORBIC ACID
     Indication: Rheumatoid arthritis
     Route: 065
  49. SULFAMETHOXAZOLE AND TRIMETHOPRIM [Suspect]
     Active Substance: SULFAMETHOXAZOLE\TRIMETHOPRIM
     Indication: Rheumatoid arthritis
     Route: 065
  50. TRIMETHOPRIM [Suspect]
     Active Substance: TRIMETHOPRIM
     Indication: Rheumatoid arthritis
     Route: 065
  51. ASPIRIN [Suspect]
     Active Substance: ASPIRIN
     Indication: Rheumatoid arthritis
     Route: 065
  52. HYDROXYCHLOROQUINE [Suspect]
     Active Substance: HYDROXYCHLOROQUINE
     Indication: Rheumatoid arthritis
     Route: 065
  53. METHOTREXATE SODIUM [Suspect]
     Active Substance: METHOTREXATE SODIUM
     Indication: Rheumatoid arthritis
     Route: 065
  54. CLOPIDOGREL [Suspect]
     Active Substance: CLOPIDOGREL BISULFATE
     Indication: Rheumatoid arthritis
     Route: 065
  55. ASPIRIN [Suspect]
     Active Substance: ASPIRIN
     Indication: Rheumatoid arthritis
     Route: 065
  56. DICLOFENAC SODIUM [Suspect]
     Active Substance: DICLOFENAC SODIUM
     Indication: Rheumatoid arthritis
     Route: 061
  57. VITAMIN C [Suspect]
     Active Substance: ASCORBIC ACID
     Indication: Rheumatoid arthritis
     Route: 065
  58. IBUPROFEN [Suspect]
     Active Substance: IBUPROFEN
     Indication: Rheumatoid arthritis
     Route: 048
  59. ASPIRIN\CLOPIDOGREL [Suspect]
     Active Substance: ASPIRIN\CLOPIDOGREL
     Indication: Rheumatoid arthritis
     Route: 065
  60. DICLOFENAC [Suspect]
     Active Substance: DICLOFENAC
     Indication: Rheumatoid arthritis
     Route: 061
  61. NAPROXEN SODIUM [Suspect]
     Active Substance: NAPROXEN SODIUM
     Indication: Rheumatoid arthritis
     Route: 065
  62. TRAMADOL [Suspect]
     Active Substance: TRAMADOL
     Indication: Product used for unknown indication
     Route: 065
  63. GOLD [Suspect]
     Active Substance: GOLD
     Indication: Rheumatoid arthritis
     Route: 058
  64. GOLD [Suspect]
     Active Substance: GOLD
     Indication: Pain
  65. GOLD [Suspect]
     Active Substance: GOLD
     Indication: Joint stiffness
  66. GOLD [Suspect]
     Active Substance: GOLD
     Indication: Mobility decreased
  67. SULFAMETHOXAZOLE [Suspect]
     Active Substance: SULFAMETHOXAZOLE
     Indication: Rheumatoid arthritis
     Route: 065
  68. ULTRAM [Suspect]
     Active Substance: TRAMADOL HYDROCHLORIDE
     Indication: Product used for unknown indication
     Route: 048
  69. TRAMADOL HYDROCHLORIDE [Concomitant]
     Active Substance: TRAMADOL HYDROCHLORIDE
     Indication: Rheumatoid arthritis
     Route: 065

REACTIONS (71)
  - Abdominal discomfort [Recovered/Resolved]
  - Abdominal pain upper [Recovered/Resolved]
  - Gastrointestinal disorder [Recovered/Resolved]
  - Gastrointestinal pain [Recovered/Resolved]
  - Headache [Recovered/Resolved]
  - Musculoskeletal disorder [Recovered/Resolved]
  - Nausea [Recovered/Resolved]
  - Pharyngitis [Recovered/Resolved]
  - Vomiting [Recovered/Resolved]
  - Weight decreased [Recovered/Resolved]
  - Hypophagia [Recovered/Resolved]
  - Adverse reaction [Recovered/Resolved]
  - Arthropathy [Recovered/Resolved]
  - Vomiting [Recovered/Resolved]
  - Nausea [Recovered/Resolved]
  - Gastrointestinal pain [Recovered/Resolved]
  - Headache [Recovered/Resolved]
  - Drug hypersensitivity [Recovered/Resolved]
  - Dizziness [Recovered/Resolved]
  - Decreased appetite [Recovered/Resolved]
  - Abdominal pain upper [Recovered/Resolved]
  - Abdominal discomfort [Recovered/Resolved]
  - Shoulder arthroplasty [Not Recovered/Not Resolved]
  - Deafness transitory [Recovered/Resolved]
  - Pharyngitis [Recovered/Resolved]
  - Off label use [Not Recovered/Not Resolved]
  - Musculoskeletal disorder [Recovered/Resolved]
  - Hypophagia [Recovered/Resolved]
  - Gastrointestinal disorder [Not Recovered/Not Resolved]
  - Functional gastrointestinal disorder [Recovered/Resolved]
  - Foot operation [Not Recovered/Not Resolved]
  - Feeding disorder [Recovered/Resolved]
  - Eating disorder [Not Recovered/Not Resolved]
  - Ear infection [Recovered/Resolved]
  - Decreased appetite [Recovered/Resolved]
  - Deafness transitory [Recovered/Resolved]
  - Deafness [Recovered/Resolved]
  - Arthropathy [Recovered/Resolved]
  - Weight decreased [Recovered/Resolved]
  - Abnormal loss of weight [Not Recovered/Not Resolved]
  - Abdominal discomfort [Unknown]
  - Pharyngitis [Unknown]
  - Deafness [Unknown]
  - Decreased appetite [Unknown]
  - Dizziness [Recovered/Resolved]
  - Musculoskeletal disorder [Not Recovered/Not Resolved]
  - Abdominal discomfort [Not Recovered/Not Resolved]
  - Nausea [Not Recovered/Not Resolved]
  - Headache [Not Recovered/Not Resolved]
  - Pharyngitis [Not Recovered/Not Resolved]
  - Gastrointestinal pain [Not Recovered/Not Resolved]
  - Shoulder arthroplasty [Not Recovered/Not Resolved]
  - Vomiting [Not Recovered/Not Resolved]
  - Functional gastrointestinal disorder [Not Recovered/Not Resolved]
  - Foot operation [Not Recovered/Not Resolved]
  - Drug hypersensitivity [Recovered/Resolved]
  - Weight decreased [Not Recovered/Not Resolved]
  - Feeding disorder [Not Recovered/Not Resolved]
  - Ear infection [Not Recovered/Not Resolved]
  - Drug hypersensitivity [Not Recovered/Not Resolved]
  - Dizziness [Not Recovered/Not Resolved]
  - Decreased appetite [Not Recovered/Not Resolved]
  - Deafness transitory [Not Recovered/Not Resolved]
  - Arthropathy [Not Recovered/Not Resolved]
  - Adverse drug reaction [Not Recovered/Not Resolved]
  - Abnormal loss of weight [Not Recovered/Not Resolved]
  - Ear infection [Recovered/Resolved]
  - Abdominal pain upper [Not Recovered/Not Resolved]
  - Hypophagia [Not Recovered/Not Resolved]
  - Feeding disorder [Recovered/Resolved]
  - Functional gastrointestinal disorder [Recovered/Resolved]
